FAERS Safety Report 8886339 (Version 3)
Quarter: 2013Q2

REPORT INFORMATION
  Report Type: Spontaneous
  Country: DE (occurrence: DE)
  Receive Date: 20121105
  Receipt Date: 20130412
  Transmission Date: 20140414
  Serious: Yes (Hospitalization)
  Sender: FDA-Public Use
  Company Number: DE-EISAI INC-E7389-03194-SPO-DE

PATIENT
  Age: 59 Year
  Sex: Female
  Weight: 66 kg

DRUGS (8)
  1. HALAVEN [Suspect]
     Indication: BREAST CANCER
     Route: 041
     Dates: start: 20121016, end: 201210
  2. FOSAPREPITANT [Concomitant]
     Indication: NAUSEA
     Route: 042
     Dates: start: 20121016
  3. GRANISETRON [Concomitant]
     Indication: NAUSEA
     Route: 042
     Dates: start: 20121016
  4. DEXAMETHASONE [Concomitant]
     Indication: NAUSEA
     Dates: start: 20121016, end: 20121018
  5. NADROPARIN [Concomitant]
     Indication: PULMONARY EMBOLISM
     Dosage: 0.6
     Route: 058
  6. IBUPROFEN [Concomitant]
     Indication: BREAST CANCER
     Dosage: UNKNOWN
     Route: 048
  7. PANTOPRAZOLE [Concomitant]
     Indication: PROPHYLAXIS
     Route: 048
  8. ZOPICLONE [Concomitant]
     Indication: SLEEP DISORDER
     Route: 048

REACTIONS (2)
  - Palmar-plantar erythrodysaesthesia syndrome [Not Recovered/Not Resolved]
  - Mucosal inflammation [Recovered/Resolved]
